FAERS Safety Report 6690384-6 (Version None)
Quarter: 2010Q2

REPORT INFORMATION
  Report Type: 
  Country: None (occurrence: None)
  Receive Date: 20100420
  Receipt Date: 20100420
  Transmission Date: 20101027
  Serious: No
  Sender: FDA-Public Use
  Company Number: None

PATIENT

DRUGS (1)
  1. TEGRETOL-XR [Suspect]

REACTIONS (2)
  - CONVULSION [None]
  - WEIGHT INCREASED [None]
